FAERS Safety Report 5732795-9 (Version None)
Quarter: 2008Q2

REPORT INFORMATION
  Report Type: 
  Country: None (occurrence: None)
  Receive Date: 20080507
  Receipt Date: 20080507
  Transmission Date: 20081010
  Serious: No
  Sender: FDA-Public Use
  Company Number: None

PATIENT
  Sex: Male
  Weight: 77 kg

DRUGS (2)
  1. BEVACIZUMAB (RHUMAB VEGF) [Suspect]
     Dosage: 1160 MG
     Dates: end: 20080213
  2. CISPLATIN [Suspect]
     Dosage: 125 MG

REACTIONS (2)
  - HAEMATURIA [None]
  - PNEUMONIA ASPIRATION [None]
